FAERS Safety Report 6894108-9 (Version None)
Quarter: 2010Q3

REPORT INFORMATION
  Report Type: 
  Country: None (occurrence: None)
  Receive Date: 20100728
  Receipt Date: 20100713
  Transmission Date: 20110219
  Serious: Yes (Other)
  Sender: FDA-Public Use
  Company Number: AUR-APL-2010-01790

PATIENT
  Age: 42 Year
  Sex: Male
  Weight: 105.6 kg

DRUGS (2)
  1. METFORMIN HCL [Suspect]
     Indication: TYPE 2 DIABETES MELLITUS
     Dosage: 500MG-1G BID
  2. VICTOZA [Suspect]
     Dosage: 0.6-1.2MG DAILY SUBQ
     Route: 058
     Dates: start: 20100324, end: 20100506

REACTIONS (13)
  - ABDOMINAL DISCOMFORT [None]
  - ABDOMINAL TENDERNESS [None]
  - BLOOD GLUCOSE INCREASED [None]
  - BREATH ODOUR [None]
  - DIARRHOEA [None]
  - ERUCTATION [None]
  - FEELING ABNORMAL [None]
  - FLATULENCE [None]
  - GASTROINTESTINAL INFECTION [None]
  - GASTROINTESTINAL SOUNDS ABNORMAL [None]
  - IMPAIRED WORK ABILITY [None]
  - NAUSEA [None]
  - VOMITING [None]
